FAERS Safety Report 16925542 (Version 1)
Quarter: 2019Q4

REPORT INFORMATION
  Report Type: Spontaneous
  Country: CA (occurrence: CA)
  Receive Date: 20191016
  Receipt Date: 20191016
  Transmission Date: 20200122
  Serious: Yes (Life-Threatening)
  Sender: FDA-Public Use
  Company Number: CA-ROCHE-2429806

PATIENT
  Age: 45 Year
  Sex: Female

DRUGS (20)
  1. CELLCEPT [Suspect]
     Active Substance: MYCOPHENOLATE MOFETIL\MYCOPHENOLATE MOFETIL HYDROCHLORIDE
     Route: 065
  2. DACLIZUMAB [Suspect]
     Active Substance: DACLIZUMAB
     Indication: TRANSPLANT
     Route: 042
  3. ENBREL [Suspect]
     Active Substance: ETANERCEPT
     Route: 058
  4. PROGRAF [Suspect]
     Active Substance: TACROLIMUS
     Route: 048
  5. REMICADE [Suspect]
     Active Substance: INFLIXIMAB
     Indication: PRODUCT USED FOR UNKNOWN INDICATION
     Route: 042
  6. CELLCEPT [Suspect]
     Active Substance: MYCOPHENOLATE MOFETIL\MYCOPHENOLATE MOFETIL HYDROCHLORIDE
     Indication: PRODUCT USED FOR UNKNOWN INDICATION
     Route: 065
  7. NEORAL [Suspect]
     Active Substance: CYCLOSPORINE
     Indication: TRANSPLANT
     Route: 065
  8. PROGRAF [Suspect]
     Active Substance: TACROLIMUS
     Route: 048
  9. ENBREL [Suspect]
     Active Substance: ETANERCEPT
     Route: 058
  10. PROGRAF [Suspect]
     Active Substance: TACROLIMUS
     Indication: TRANSPLANT
     Route: 048
  11. PROGRAF [Suspect]
     Active Substance: TACROLIMUS
     Route: 048
  12. RAPAMUNE [Suspect]
     Active Substance: SIROLIMUS
     Indication: TRANSPLANT
     Route: 065
  13. THYMOGLOBULIN [Suspect]
     Active Substance: LAPINE T-LYMPHOCYTE IMMUNE GLOBULIN
     Indication: TRANSPLANT
     Route: 065
  14. ENBREL [Suspect]
     Active Substance: ETANERCEPT
     Indication: PRODUCT USED FOR UNKNOWN INDICATION
     Route: 058
  15. PROGRAF [Suspect]
     Active Substance: TACROLIMUS
     Route: 048
  16. ENBREL [Suspect]
     Active Substance: ETANERCEPT
     Route: 058
  17. PROGRAF [Suspect]
     Active Substance: TACROLIMUS
     Route: 048
  18. PROGRAF [Suspect]
     Active Substance: TACROLIMUS
     Route: 048
  19. PROGRAF [Suspect]
     Active Substance: TACROLIMUS
     Route: 048
  20. PROGRAF [Suspect]
     Active Substance: TACROLIMUS
     Route: 048

REACTIONS (12)
  - Loss of personal independence in daily activities [Not Recovered/Not Resolved]
  - Ovarian cyst [Not Recovered/Not Resolved]
  - Sleep disorder due to general medical condition, insomnia type [Not Recovered/Not Resolved]
  - Acne [Not Recovered/Not Resolved]
  - Transplant rejection [Not Recovered/Not Resolved]
  - Alopecia [Not Recovered/Not Resolved]
  - Pneumonia [Not Recovered/Not Resolved]
  - Rheumatoid arthritis [Not Recovered/Not Resolved]
  - Liver function test abnormal [Not Recovered/Not Resolved]
  - Condition aggravated [Not Recovered/Not Resolved]
  - Pain [Not Recovered/Not Resolved]
  - Transplant dysfunction [Not Recovered/Not Resolved]
